FAERS Safety Report 7545713-8 (Version None)
Quarter: 2011Q2

REPORT INFORMATION
  Report Type: 
  Country: None (occurrence: None)
  Receive Date: 20110614
  Receipt Date: 20110603
  Transmission Date: 20111010
  Serious: Yes (Hospitalization)
  Sender: FDA-Public Use
  Company Number: US-AMGEN-USACT2011028200

PATIENT
  Age: 62 Year
  Sex: Female
  Weight: 67.6 kg

DRUGS (3)
  1. PANITUMUMAB [Suspect]
     Indication: OESOPHAGEAL ADENOCARCINOMA
     Dosage: 6 MG/KG, UNK
     Dates: start: 20101216
  2. TAXOTERE [Concomitant]
     Dosage: 40 MG/KG, UNK
     Dates: start: 20101216
  3. CISPLATIN [Concomitant]
     Dosage: 40 MG/KG, UNK
     Dates: start: 20101216

REACTIONS (1)
  - CHYLOTHORAX [None]
